FAERS Safety Report 6193566-5 (Version None)
Quarter: 2009Q2

REPORT INFORMATION
  Report Type: 
  Country: None (occurrence: None)
  Receive Date: 20090514
  Receipt Date: 20090430
  Transmission Date: 20091009
  Serious: No
  Sender: FDA-Public Use
  Company Number: 000715

PATIENT
  Age: 75 Year
  Sex: Male

DRUGS (7)
  1. ALPROSTADIL [Suspect]
     Indication: PERIPHERAL ARTERIAL OCCLUSIVE DISEASE
     Dosage: (1 VIAL ONCE INTRA-ARTERIAL)
     Route: 013
  2. ALPROSTADIL [Suspect]
     Dosage: SEE IMAGE
     Route: 042
  3. ENOXAPARIN SODIUM [Suspect]
  4. HEPARIN [Suspect]
     Dosage: (5000IE ONCE)
  5. ASPIRIN [Suspect]
     Dosage: (100 MG, 100 MG ONCE) ; (100 MG QD, 100MG DAILY)
  6. CLOPIDOGREL [Suspect]
     Dosage: (75 MG , 75MG ONCE)
  7. PLETAL [Suspect]
     Dosage: (100 MG BID)

REACTIONS (3)
  - CARDIAC DEATH [None]
  - CARDIAC DISORDER [None]
  - MYOCARDIAL INFARCTION [None]
